FAERS Safety Report 12525602 (Version 3)
Quarter: 2016Q4

REPORT INFORMATION
  Report Type: Spontaneous
  Country: US (occurrence: US)
  Receive Date: 20160705
  Receipt Date: 20161108
  Transmission Date: 20170207
  Serious: No
  Sender: FDA-Public Use
  Company Number: US-JNJFOC-20160617056

PATIENT
  Age: 25 Year
  Sex: Female
  Weight: 61.24 kg

DRUGS (1)
  1. ORTHO TRI CYCLEN LO [Suspect]
     Active Substance: ETHINYL ESTRADIOL\NORGESTIMATE
     Indication: CONTRACEPTION
     Dosage: ONE TABLET EACH DAY SINCE ABOUT 9 YEARS AGO
     Route: 048
     Dates: start: 200605

REACTIONS (3)
  - Menstrual disorder [Recovered/Resolved]
  - Drug dose omission [Unknown]
  - Product label issue [Unknown]

NARRATIVE: CASE EVENT DATE: 20160621
